FAERS Safety Report 9430072 (Version 4)
Quarter: 2013Q4

REPORT INFORMATION
  Report Type: Report from Study
  Country: US (occurrence: US)
  Receive Date: 20130730
  Receipt Date: 20131111
  Transmission Date: 20140711
  Serious: Yes (Hospitalization)
  Sender: FDA-Public Use
  Company Number: US-TEVA-421982USA

PATIENT
  Age: 36 Year
  Sex: Female

DRUGS (22)
  1. FLUOROURACIL [Suspect]
     Indication: METASTATIC GASTRIC CANCER
     Dosage: 800 MG/M2 DAILY;
     Route: 041
     Dates: start: 20110421
  2. FLUOROURACIL [Suspect]
     Dosage: 600 MG/M2 DAILY;
     Dates: start: 20110523
  3. CISPLATIN [Suspect]
     Indication: METASTATIC GASTRIC CANCER
     Dosage: 80 MG/M2 DAILY;
     Route: 041
     Dates: start: 20110421, end: 20110421
  4. CISPLATIN [Suspect]
     Dosage: 60 MG/M2 DAILY;
     Dates: start: 20110523
  5. FENTANYL [Concomitant]
     Indication: ABDOMINAL PAIN
     Dates: start: 20110405, end: 20110405
  6. VICODIN [Concomitant]
     Indication: ABDOMINAL PAIN
     Dates: start: 201103
  7. PROMETHAZINE [Concomitant]
     Indication: NAUSEA
     Dates: start: 201103
  8. PROMETHAZINE [Concomitant]
     Indication: VOMITING
  9. ONDANSETRON [Concomitant]
     Indication: NAUSEA
     Dates: start: 20110405
  10. ONDANSETRON [Concomitant]
     Indication: VOMITING
     Dates: start: 20110421, end: 20110421
  11. ONDANSETRON [Concomitant]
     Dates: start: 20110502, end: 20110504
  12. MIRTAZAPINE [Concomitant]
     Indication: DEPRESSION
     Dates: start: 20110413
  13. LORAZEPAM [Concomitant]
     Indication: PROPHYLAXIS OF NAUSEA AND VOMITING
     Dates: start: 20110421, end: 20110421
  14. FOSAPREPITANT [Concomitant]
     Indication: PROPHYLAXIS OF NAUSEA AND VOMITING
     Dates: start: 20110421, end: 20110421
  15. DEXAMETHASONE [Concomitant]
     Indication: PROPHYLAXIS OF NAUSEA AND VOMITING
     Dates: start: 20110421, end: 20110421
  16. DEXTROSE AND SODIUM CHLORIDE INJECTION [Concomitant]
     Indication: PROPHYLAXIS AGAINST DEHYDRATION
     Dosage: D5 1/2 NS
     Dates: start: 20110421, end: 20110421
  17. PANTOPRAZOLE [Concomitant]
     Indication: PROPHYLAXIS
     Dates: start: 20110502, end: 20110504
  18. POTASSIUM CHLORIDE [Concomitant]
     Indication: PROPHYLAXIS AGAINST DEHYDRATION
     Dates: start: 20110421, end: 20110422
  19. MAGNESIUM SULFATE [Concomitant]
     Indication: PROPHYLAXIS AGAINST DEHYDRATION
     Dates: start: 20110421, end: 20110422
  20. VICODIN [Concomitant]
     Indication: ABDOMINAL PAIN
     Dates: start: 20110503, end: 20110504
  21. SODIUM CHLORIDE COMPOUND INJECTION [Concomitant]
     Indication: DEHYDRATION
     Dosage: LACTATED RINGERS
     Dates: start: 20110503, end: 20110504
  22. NORCO [Concomitant]
     Indication: ABDOMINAL PAIN
     Dates: start: 20110503, end: 20110504

REACTIONS (3)
  - Vomiting [Recovered/Resolved]
  - Dehydration [Recovered/Resolved]
  - Hypokalaemia [Recovered/Resolved with Sequelae]
